FAERS Safety Report 4384124-3 (Version None)
Quarter: 2004Q2

REPORT INFORMATION
  Report Type: 
  Country: None (occurrence: None)
  Receive Date: 20040618
  Receipt Date: 20040608
  Transmission Date: 20050107
  Serious: Yes (Other)
  Sender: FDA-Public Use
  Company Number: HQWYE762307MAY04

PATIENT
  Sex: Female

DRUGS (2)
  1. EFFEXOR [Suspect]
     Indication: DEPRESSION
     Dosage: 150 MG 1X PER 1 DAY
     Route: 048
     Dates: start: 20010101, end: 20030120
  2. ELTROXIN (LEVOTHYROXINE SODIUM) [Concomitant]

REACTIONS (2)
  - DRUG EXPOSURE DURING PREGNANCY [None]
  - EAR MALFORMATION [None]
